FAERS Safety Report 5715235-5 (Version None)
Quarter: 2008Q2

REPORT INFORMATION
  Report Type: 
  Country: None (occurrence: None)
  Receive Date: 20080422
  Receipt Date: 20080410
  Transmission Date: 20081010
  Serious: Yes (Hospitalization, Other)
  Sender: FDA-Public Use
  Company Number: 2008S1003014

PATIENT
  Sex: Female

DRUGS (1)
  1. PHOSPHOSODA FLAVOR NOT SPECIFIED [Suspect]

REACTIONS (2)
  - CARDIAC MONITORING ABNORMAL [None]
  - VENTRICULAR EXTRASYSTOLES [None]
